FAERS Safety Report 9838814 (Version 1)
Quarter: 2014Q1

REPORT INFORMATION
  Report Type: Spontaneous
  Country: IT (occurrence: None)
  Receive Date: 20140116
  Receipt Date: 20140116
  Transmission Date: 20141002
  Serious: Yes (Hospitalization)
  Sender: FDA-Public Use
  Company Number: IPC201401-000007

PATIENT
  Sex: 0

DRUGS (1)
  1. METFORMIN HYDROCHLORIDE [Suspect]

REACTIONS (5)
  - Renal failure [None]
  - Dehydration [None]
  - Toxicity to various agents [None]
  - Lactic acidosis [None]
  - Hypoglycaemia [None]
